FAERS Safety Report 13794327 (Version 13)
Quarter: 2022Q2

REPORT INFORMATION
  Report Type: Spontaneous
  Country: US (occurrence: US)
  Receive Date: 20170726
  Receipt Date: 20220516
  Transmission Date: 20220721
  Serious: No
  Sender: FDA-Public Use
  Company Number: US-PFIZER INC-2017241581

PATIENT
  Age: 25 Year
  Sex: Male

DRUGS (6)
  1. XELJANZ [Suspect]
     Active Substance: TOFACITINIB CITRATE
     Indication: Rheumatoid arthritis
     Dosage: 5 MG, 3X/DAY
  2. XELJANZ [Suspect]
     Active Substance: TOFACITINIB CITRATE
     Indication: Alopecia universalis
     Dosage: 5 MG, 2X/DAY
     Route: 048
  3. XELJANZ [Suspect]
     Active Substance: TOFACITINIB CITRATE
     Indication: Alopecia
     Dosage: 10 MG, 2X/DAY (TWO XELJANZ 5MG TWICE A DAY)
  4. XELJANZ [Suspect]
     Active Substance: TOFACITINIB CITRATE
     Dosage: 10 MG, 2X/DAY (FOUR PILLS A DAY, TAKING TWO PILLS TWICE A DAY/XELJANZ 10MG 1 TABLET TWICE A DAY])
     Route: 048
  5. XELJANZ [Suspect]
     Active Substance: TOFACITINIB CITRATE
     Dosage: 5 MG, 4X/DAY
  6. XELJANZ [Suspect]
     Active Substance: TOFACITINIB CITRATE
     Dosage: 10 MG, 2X/DAY

REACTIONS (5)
  - Drug ineffective [Unknown]
  - Off label use [Unknown]
  - Product use issue [Unknown]
  - Product dose omission issue [Unknown]
  - Influenza [Unknown]
